FAERS Safety Report 7819106-X (Version None)
Quarter: 2011Q4

REPORT INFORMATION
  Report Type: 
  Country: None (occurrence: None)
  Receive Date: 20111005
  Receipt Date: 20110926
  Transmission Date: 20120403
  Serious: Yes (Hospitalization)
  Sender: FDA-Public Use
  Company Number: 2011029740

PATIENT
  Age: 33 Year
  Sex: Female

DRUGS (6)
  1. PRIVIGEN [Suspect]
     Indication: IDIOPATHIC THROMBOCYTOPENIC PURPURA
     Dates: start: 20100922, end: 20100923
  2. LANSOPRAZOLE [Suspect]
     Dates: start: 20100907, end: 20100928
  3. DEXAMETHASONE [Concomitant]
  4. NORETHINDRONE [Suspect]
     Dates: start: 20100922, end: 20100928
  5. TRANEXAMIC ACID [Suspect]
     Dates: start: 20100922, end: 20100928
  6. RITUXIMAB [Suspect]

REACTIONS (10)
  - RASH MACULO-PAPULAR [None]
  - HAEMOGLOBIN DECREASED [None]
  - VAGINAL HAEMORRHAGE [None]
  - RASH GENERALISED [None]
  - WHITE BLOOD CELL COUNT DECREASED [None]
  - RASH ERYTHEMATOUS [None]
  - RECTAL HAEMORRHAGE [None]
  - PLATELET COUNT DECREASED [None]
  - RED BLOOD CELL COUNT DECREASED [None]
  - PURPURA [None]
